FAERS Safety Report 4810960-2 (Version None)
Quarter: 2005Q4

REPORT INFORMATION
  Report Type: 
  Country: None (occurrence: None)
  Receive Date: 20051025
  Receipt Date: 20051012
  Transmission Date: 20060501
  Serious: Yes (Disabling, Other)
  Sender: FDA-Public Use
  Company Number: 2005138057

PATIENT
  Sex: Female

DRUGS (1)
  1. MACUGEN [Suspect]
     Indication: MACULAR DEGENERATION
     Dates: start: 20050901, end: 20050901

REACTIONS (5)
  - BLINDNESS UNILATERAL [None]
  - DRUG HYPERSENSITIVITY [None]
  - INFLAMMATION [None]
  - POST PROCEDURAL COMPLICATION [None]
  - VITREOUS DISORDER [None]
